FAERS Safety Report 14647683 (Version 2)
Quarter: 2018Q2

REPORT INFORMATION
  Report Type: Spontaneous
  Country: AR (occurrence: AR)
  Receive Date: 20180316
  Receipt Date: 20180426
  Transmission Date: 20180711
  Serious: Yes (Death)
  Sender: FDA-Public Use
  Company Number: AR-ORPHAN EUROPE-2043923

PATIENT
  Age: 12 Month
  Sex: Male
  Weight: 9 kg

DRUGS (3)
  1. SODIUM BENZOATE [Concomitant]
     Active Substance: SODIUM BENZOATE
     Route: 042
  2. CARBAGLU [Suspect]
     Active Substance: CARGLUMIC ACID
     Indication: ORNITHINE TRANSCARBAMOYLASE DEFICIENCY
     Route: 048
     Dates: start: 20170502, end: 20180215
  3. ARGININE [Concomitant]
     Active Substance: ARGININE
     Route: 042

REACTIONS (3)
  - Drug ineffective for unapproved indication [Recovered/Resolved]
  - Death [Fatal]
  - Off label use [Recovered/Resolved]

NARRATIVE: CASE EVENT DATE: 20170502
